FAERS Safety Report 5165989-4 (Version None)
Quarter: 2006Q4

REPORT INFORMATION
  Report Type: 
  Country: None (occurrence: None)
  Receive Date: 20061128
  Receipt Date: 20061115
  Transmission Date: 20070319
  Serious: Yes (Hospitalization, Other)
  Sender: FDA-Public Use
  Company Number: 2006US002393

PATIENT
  Age: 58 Year
  Sex: Female
  Weight: 98.9 kg

DRUGS (4)
  1. AMEVIVE [Suspect]
     Indication: PSORIASIS
     Dosage: 15 MG, WEEKLY, INTRAMUSCULAR
     Route: 030
     Dates: start: 20050401, end: 20060315
  2. CYCLOSPORINE [Concomitant]
  3. HUMIRA [Concomitant]
  4. ULTRAVATE (ULOBETASOL PROPIONATE) [Concomitant]

REACTIONS (6)
  - APPENDICITIS [None]
  - CARDIAC FAILURE CONGESTIVE [None]
  - HYPERTENSION [None]
  - HYPOCHROMIC ANAEMIA [None]
  - PULMONARY CONGESTION [None]
  - THERAPY NON-RESPONDER [None]
